FAERS Safety Report 9123682 (Version 1)
Quarter: 2013Q1

REPORT INFORMATION
  Report Type: Spontaneous
  Country: US (occurrence: US)
  Receive Date: 20130115
  Receipt Date: 20130115
  Transmission Date: 20140127
  Serious: Yes (Hospitalization)
  Sender: FDA-Public Use
  Company Number: PHEH2013US001235

PATIENT
  Sex: Female

DRUGS (11)
  1. EXFORGE [Suspect]
     Dosage: 320/10 MG, ONCE DAILY
  2. LIPITOR [Concomitant]
     Dosage: 40 MG, UNK
  3. BYSTOLIC [Concomitant]
     Dosage: UNK UKN, UNK
  4. LEVOTHYROXINE [Concomitant]
     Dosage: UNK UKN, UNK
  5. KLOR-CON [Concomitant]
     Dosage: UNK UKN, UNK
  6. FUROSEMIDE [Concomitant]
     Dosage: UNK UKN, UNK
  7. FAMOTIDINE [Concomitant]
     Dosage: UNK UKN, UNK
  8. FOLIC ACID [Concomitant]
     Dosage: UNK UKN, UNK
  9. VITAMIN B-12 [Concomitant]
     Dosage: UNK UKN, UNK
  10. CLOPIDOGREL [Concomitant]
     Dosage: UNK UKN, UNK
  11. BABY ASPIRIN [Concomitant]
     Dosage: UNK UKN, UNK

REACTIONS (1)
  - Cerebrovascular accident [Unknown]
